FAERS Safety Report 7483044-5 (Version None)
Quarter: 2011Q2

REPORT INFORMATION
  Report Type: 
  Country: None (occurrence: None)
  Receive Date: 20110516
  Receipt Date: 20110411
  Transmission Date: 20111010
  Serious: Yes (Hospitalization)
  Sender: FDA-Public Use
  Company Number: US-BAYER-201040684NA

PATIENT
  Age: 24 Year
  Sex: Female
  Weight: 89 kg

DRUGS (2)
  1. ACETAMINOPHEN [Concomitant]
  2. YAZ [Suspect]
     Indication: ORAL CONTRACEPTION
     Dosage: UNK
     Route: 048
     Dates: start: 20080901, end: 20090101

REACTIONS (2)
  - PAIN [None]
  - PULMONARY EMBOLISM [None]
